FAERS Safety Report 9847333 (Version 1)
Quarter: 2014Q1

REPORT INFORMATION
  Report Type: Spontaneous
  Country: US (occurrence: US)
  Receive Date: 20140127
  Receipt Date: 20140127
  Transmission Date: 20141002
  Serious: Yes (Other)
  Sender: FDA-Public Use
  Company Number: US-BAXTER-2014BAX003089

PATIENT
  Age: 23 Year
  Sex: Female

DRUGS (5)
  1. GAMMAGARD LIQUID [Suspect]
     Indication: HAEMOPHILIA
     Route: 042
  2. CYCLOPHOSPHAMIDE FOR INJECTION, USP [Suspect]
     Indication: DIFFUSE LARGE B-CELL LYMPHOMA
  3. BORTEZOMIB [Suspect]
     Indication: DIFFUSE LARGE B-CELL LYMPHOMA
  4. DEXAMETHASONE [Suspect]
     Indication: DIFFUSE LARGE B-CELL LYMPHOMA
  5. RITUXIMAB [Suspect]
     Indication: DIFFUSE LARGE B-CELL LYMPHOMA

REACTIONS (4)
  - Treatment failure [Not Recovered/Not Resolved]
  - Visual acuity reduced [Unknown]
  - Vitreous haemorrhage [Unknown]
  - Vitreous detachment [Unknown]
